FAERS Safety Report 26112530 (Version 1)
Quarter: 2025Q4

REPORT INFORMATION
  Report Type: Report from Study
  Country: EU (occurrence: EU)
  Receive Date: 20251202
  Receipt Date: 20251202
  Transmission Date: 20260117
  Serious: Yes (Other)
  Sender: MYLAN
  Company Number: EU-GSK-FR2025GSK040720

PATIENT
  Age: 58 Year
  Sex: Female

DRUGS (4)
  1. PACLITAXEL [Suspect]
     Active Substance: PACLITAXEL
     Indication: Endometrial cancer recurrent
     Dosage: 175 MILLIGRAM/SQ. METER
     Dates: start: 20250213, end: 20250925
  2. CARBOPLATIN [Suspect]
     Active Substance: CARBOPLATIN
     Indication: Endometrial cancer recurrent
     Dosage: 5 MILLIGRAM PER MILLILITRE, QMINUTE
     Dates: start: 20250213, end: 20250925
  3. DOSTARLIMAB [Suspect]
     Active Substance: DOSTARLIMAB
     Indication: Endometrial cancer recurrent
     Dosage: 500 MILLIGRAM, Q3W
     Dates: start: 20250213
  4. DOSTARLIMAB [Suspect]
     Active Substance: DOSTARLIMAB
     Dosage: 1000 MILLIGRAM, Q6W

REACTIONS (2)
  - Malignant neoplasm progression [Unknown]
  - Dermatitis allergic [Unknown]
